FAERS Safety Report 17119416 (Version 2)
Quarter: 2019Q4

REPORT INFORMATION
  Report Type: Spontaneous
  Country: BR (occurrence: BR)
  Receive Date: 20191206
  Receipt Date: 20191212
  Transmission Date: 20200122
  Serious: Yes (Hospitalization, Other)
  Sender: FDA-Public Use
  Company Number: BR-AMGEN-BRASP2019202365

PATIENT
  Age: 52 Year
  Sex: Female
  Weight: 73 kg

DRUGS (2)
  1. ENBREL [Suspect]
     Active Substance: ETANERCEPT
     Indication: RHEUMATOID ARTHRITIS
     Dosage: 50 MILLIGRAM, QWK (1 APPLICATION PER WEEK)
     Route: 065
     Dates: start: 2016
  2. PURAN [Concomitant]
     Active Substance: LEVOTHYROXINE SODIUM
     Dosage: UNK  (STARTED 5 YEARS AGO)
     Dates: start: 2014

REACTIONS (1)
  - Cholecystitis [Recovering/Resolving]

NARRATIVE: CASE EVENT DATE: 201911
